FAERS Safety Report 11075210 (Version 1)
Quarter: 2015Q2

REPORT INFORMATION
  Report Type: Spontaneous
  Country: FR (occurrence: FR)
  Receive Date: 20150429
  Receipt Date: 20150429
  Transmission Date: 20150821
  Serious: Yes (Hospitalization)
  Sender: FDA-Public Use
  Company Number: FR-PFIZER INC-2015139753

PATIENT
  Age: 20 Year
  Sex: Female

DRUGS (2)
  1. XANAX [Suspect]
     Active Substance: ALPRAZOLAM
     Indication: TOXICITY TO VARIOUS AGENTS
     Dosage: THREE BLISTER PACKS
     Route: 048
     Dates: start: 20150202, end: 20150202
  2. TERCIAN /00759301/ [Suspect]
     Active Substance: CYAMEMAZINE
     Indication: TOXICITY TO VARIOUS AGENTS
     Dosage: 1 BOTTLE
     Route: 048
     Dates: start: 20150202, end: 20150202

REACTIONS (1)
  - Coma [Unknown]

NARRATIVE: CASE EVENT DATE: 20150202
